FAERS Safety Report 23458616 (Version 2)
Quarter: 2024Q1

REPORT INFORMATION
  Report Type: Report from Study
  Country: CA (occurrence: CA)
  Receive Date: 20240130
  Receipt Date: 20240207
  Transmission Date: 20240410
  Serious: No
  Sender: FDA-Public Use
  Company Number: CA-ABBVIE-5467697

PATIENT
  Age: 58 Year
  Sex: Male

DRUGS (3)
  1. CARBIDOPA\LEVODOPA [Suspect]
     Active Substance: CARBIDOPA\LEVODOPA
     Indication: Parkinson^s disease
     Route: 050
  2. CARBIDOPA\LEVODOPA [Suspect]
     Active Substance: CARBIDOPA\LEVODOPA
     Dosage: MORNING DOSE: 10ML, CONTINUOUS DOSE : 2ML/HR -EXTRA-DOSE :2ML, DUODOPA-LEVODOPA20MG/ML,CARBIDOPAM...
     Route: 050
     Dates: start: 20201117, end: 20240124
  3. CARBIDOPA\LEVODOPA [Concomitant]
     Active Substance: CARBIDOPA\LEVODOPA
     Indication: Product used for unknown indication
     Route: 048

REACTIONS (2)
  - Dyskinesia [Recovering/Resolving]
  - On and off phenomenon [Recovering/Resolving]

NARRATIVE: CASE EVENT DATE: 20240101
